FAERS Safety Report 9708613 (Version 1)
Quarter: 2013Q4

REPORT INFORMATION
  Report Type: Spontaneous
  Country: US (occurrence: US)
  Receive Date: 20131125
  Receipt Date: 20131125
  Transmission Date: 20140711
  Serious: Yes (Other)
  Sender: FDA-Public Use
  Company Number: US-PFIZER INC-2013335582

PATIENT
  Age: 84 Year
  Sex: Female
  Weight: 83.9 kg

DRUGS (3)
  1. SOMAVERT [Suspect]
     Indication: ACROMEGALY
     Dosage: 20 MG, 1X/DAY
     Dates: start: 200803
  2. TOPOROL [Concomitant]
     Indication: HYPERTENSION
     Dosage: 100 MG, 1X/DAY
  3. SOMATULINE DEPOT [Concomitant]
     Indication: BLOOD GROWTH HORMONE ABNORMAL
     Dosage: 90 MG, MONTHLY

REACTIONS (2)
  - Breast cancer female [Recovered/Resolved]
  - Breast pain [Unknown]
